FAERS Safety Report 15463889 (Version 2)
Quarter: 2018Q4

REPORT INFORMATION
  Report Type: Spontaneous
  Country: US (occurrence: US)
  Receive Date: 20181004
  Receipt Date: 20181006
  Transmission Date: 20190204
  Serious: No
  Sender: FDA-Public Use
  Company Number: US-009507513-1809USA001632

PATIENT
  Age: 53 Year
  Sex: Female

DRUGS (3)
  1. ASMANEX [Suspect]
     Active Substance: MOMETASONE FUROATE
     Indication: ASTHMA
     Dosage: 1 INHALATION ONCE A DAY
     Route: 055
     Dates: start: 201802
  2. ASMANEX [Suspect]
     Active Substance: MOMETASONE FUROATE
     Dosage: 1 INHALATION ONCE A DAY (STOPPED WORKING TOO SOON )
     Route: 055
     Dates: start: 201806
  3. ASMANEX [Suspect]
     Active Substance: MOMETASONE FUROATE
     Dosage: 1 INHALATION ONCE A DAY (STOPPED WORKING TOO SOON )
     Route: 055
     Dates: start: 201806

REACTIONS (3)
  - Dyspnoea [Not Recovered/Not Resolved]
  - Product container issue [Unknown]
  - Poor quality device used [Unknown]

NARRATIVE: CASE EVENT DATE: 201806
